FAERS Safety Report 8641754 (Version 3)
Quarter: 2012Q4

REPORT INFORMATION
  Report Type: 
  Country: US (occurrence: US)
  Receive Date: 20120628
  Receipt Date: 20121024
  Transmission Date: 20130627
  Serious: No
  Sender: FDA-Public Use
  Company Number: US-PFIZER INC-2012152485

PATIENT
  Age: 28 Year
  Sex: Female

DRUGS (9)
  1. LYRICA [Suspect]
     Indication: NECK PAIN
     Dosage: 75 mg, 2x/day
     Route: 048
     Dates: start: 20111221, end: 20120412
  2. LYRICA [Suspect]
     Indication: PAIN IN EXTREMITY
     Dosage: 75 mg, 2x/day
     Route: 048
     Dates: start: 20120705, end: 20120725
  3. LYRICA [Suspect]
     Indication: HERPES ZOSTER
  4. LYRICA [Suspect]
     Indication: NERVE COMPRESSION
  5. LYRICA [Suspect]
     Indication: PAIN
  6. ZANAFLEX [Suspect]
     Indication: MYALGIA
     Dosage: 4 mg, UNK
     Dates: start: 20120402, end: 20120412
  7. ZANAFLEX [Suspect]
     Indication: NECK PAIN
  8. LOSARTAN [Concomitant]
     Indication: HYPERTENSION
     Dosage: 12.5 mg, 1x/day
     Dates: start: 201108
  9. CITALOPRAM [Concomitant]
     Indication: DEPRESSION
     Dosage: 20 mg, 1x/day
     Dates: start: 201108, end: 201202

REACTIONS (5)
  - Drug ineffective [Unknown]
  - Musculoskeletal pain [Unknown]
  - Pain [Not Recovered/Not Resolved]
  - Spinal pain [Unknown]
  - Headache [Unknown]
